FAERS Safety Report 18918898 (Version 2)
Quarter: 2021Q1

REPORT INFORMATION
  Report Type: Report from Study
  Country: CH (occurrence: CH)
  Receive Date: 20210220
  Receipt Date: 20210303
  Transmission Date: 20210420
  Serious: Yes (Death, Hospitalization, Other)
  Sender: FDA-Public Use
  Company Number: CH-TAKEDA-2021TUS008539

PATIENT
  Age: 79 Year
  Sex: Male

DRUGS (1)
  1. HUMAN NORMAL IMMUNOGLOBULIN [Suspect]
     Active Substance: HUMAN IMMUNOGLOBULIN G
     Indication: VON WILLEBRAND^S DISEASE
     Dosage: 1950 INTERNATIONAL UNIT, 6 X WEEKLY
     Route: 065
     Dates: start: 20200904, end: 20210202

REACTIONS (1)
  - Gastrointestinal haemorrhage [Fatal]
